FAERS Safety Report 14076738 (Version 1)
Quarter: 2017Q4

REPORT INFORMATION
  Report Type: Spontaneous
  Country: US (occurrence: US)
  Receive Date: 20171011
  Receipt Date: 20171011
  Transmission Date: 20180321
  Serious: No
  Sender: FDA-Public Use
  Company Number: US-TAKEDA-2017TUS020618

PATIENT
  Sex: Female
  Weight: 3.63 kg

DRUGS (1)
  1. PREVACID [Suspect]
     Active Substance: LANSOPRAZOLE
     Indication: GASTROOESOPHAGEAL REFLUX DISEASE
     Dosage: UNK, QD
     Route: 065

REACTIONS (3)
  - Drug administered to patient of inappropriate age [Unknown]
  - Wrong technique in product usage process [Unknown]
  - No adverse event [Unknown]
